FAERS Safety Report 8374375-5 (Version None)
Quarter: 2012Q2

REPORT INFORMATION
  Report Type: 
  Country: None (occurrence: None)
  Receive Date: 20120521
  Receipt Date: 20120511
  Transmission Date: 20120825
  Serious: Yes (Disabling)
  Sender: FDA-Public Use
  Company Number: US-ASTRAZENECA-2011SE51817

PATIENT
  Age: 63 Year
  Sex: Female

DRUGS (2)
  1. SEROQUEL XR [Suspect]
     Indication: DEPRESSION
     Route: 048
  2. SYMBICORT [Suspect]
     Route: 055

REACTIONS (6)
  - MENTAL DISORDER [None]
  - MUSCLE SPASMS [None]
  - DEPRESSION [None]
  - ASTHMA [None]
  - BIPOLAR DISORDER [None]
  - DRUG INEFFECTIVE [None]
